FAERS Safety Report 8807746 (Version 3)
Quarter: 2013Q3

REPORT INFORMATION
  Report Type: Spontaneous
  Country: US (occurrence: US)
  Receive Date: 20120925
  Receipt Date: 20130826
  Transmission Date: 20140515
  Serious: Yes (Hospitalization, Other)
  Sender: FDA-Public Use
  Company Number: US-BAYER-2012-097265

PATIENT
  Age: 20 Year
  Sex: Female
  Weight: 55 kg

DRUGS (1)
  1. MIRENA [Suspect]
     Indication: CONTRACEPTION
     Dosage: 20 MCG/24HR, CONT
     Route: 015
     Dates: start: 201101, end: 20120829

REACTIONS (6)
  - Ovarian cyst [None]
  - Ovarian mass [None]
  - Endometriosis [None]
  - Pain [None]
  - Injury [None]
  - Abdominal pain lower [None]
